FAERS Safety Report 5825443-0 (Version None)
Quarter: 2008Q3

REPORT INFORMATION
  Report Type: 
  Country: None (occurrence: None)
  Receive Date: 20080723
  Receipt Date: 20080711
  Transmission Date: 20090109
  Serious: Yes (Death)
  Sender: FDA-Public Use
  Company Number: CIO08012078

PATIENT
  Sex: Female

DRUGS (1)
  1. VAPORUB, FORM/VERSION UNKNOWN(CAMPHOR 129-150 MG, CEDAR LEAF OIL UNKNO [Suspect]

REACTIONS (2)
  - DYSPNOEA [None]
  - LUNG DISORDER [None]
